FAERS Safety Report 10218903 (Version 2)
Quarter: 2014Q2

REPORT INFORMATION
  Report Type: Spontaneous
  Country: DE (occurrence: DE)
  Receive Date: 20140605
  Receipt Date: 20140605
  Transmission Date: 20141212
  Serious: Yes (Other)
  Sender: FDA-Public Use
  Company Number: DE-BAYER-2014-066672

PATIENT
  Sex: Female

DRUGS (1)
  1. BETAFERON [Suspect]
     Indication: MULTIPLE SCLEROSIS
     Dosage: 8 MIU, QOD
     Dates: start: 2010, end: 2011

REACTIONS (4)
  - Fungal infection [None]
  - Drug intolerance [Recovered/Resolved]
  - Injection site reaction [None]
  - Skin reaction [None]
